FAERS Safety Report 8604560-6 (Version None)
Quarter: 2012Q3

REPORT INFORMATION
  Report Type: 
  Country: None (occurrence: None)
  Receive Date: 20120820
  Receipt Date: 20120809
  Transmission Date: 20120928
  Serious: Yes (Hospitalization)
  Sender: FDA-Public Use
  Company Number: US-BAYER-201024989NA

PATIENT
  Age: 41 Year
  Sex: Female
  Weight: 56.689 kg

DRUGS (2)
  1. ESGIC-PLUS [Concomitant]
     Dosage: 2 STAT (IMMEDIATELY) FOLLOWED BY 1 Q 6 HR PRN (EVERY 6 HOURS AS NEEDED)
     Dates: start: 20080328
  2. YAZ [Suspect]
     Indication: CONTRACEPTION
     Dosage: UNK
     Route: 048
     Dates: start: 20070101, end: 20080421

REACTIONS (3)
  - PAIN [None]
  - DEEP VEIN THROMBOSIS [None]
  - EMOTIONAL DISTRESS [None]
